FAERS Safety Report 4399084-9 (Version None)
Quarter: 2004Q2

REPORT INFORMATION
  Report Type: 
  Country: None (occurrence: None)
  Receive Date: 20040621
  Receipt Date: 20031119
  Transmission Date: 20050107
  Serious: Yes (Death, Other)
  Sender: FDA-Public Use
  Company Number: 2012527

PATIENT
  Age: 19 Year
  Sex: Male
  Weight: 145 kg

DRUGS (6)
  1. OXYCONTIN [Suspect]
  2. FENTANYL [Suspect]
  3. DEPAKOTE [Concomitant]
  4. CEPHALEXIN [Concomitant]
  5. EPHEDRINE [Concomitant]
  6. KLONOPIN [Concomitant]

REACTIONS (3)
  - ACCIDENTAL OVERDOSE [None]
  - DRUG ABUSER [None]
  - DRUG DEPENDENCE [None]
